FAERS Safety Report 20930065 (Version 1)
Quarter: 2022Q2

REPORT INFORMATION
  Report Type: Spontaneous
  Country: US (occurrence: US)
  Receive Date: 20220608
  Receipt Date: 20220608
  Transmission Date: 20220720
  Serious: Yes (Hospitalization, Other)
  Sender: FDA-Public Use
  Company Number: US-MLMSERVICE-20220518-3568273-1

PATIENT
  Age: 36 Year
  Sex: Female

DRUGS (4)
  1. GRANISETRON [Interacting]
     Active Substance: GRANISETRON
     Indication: Nausea
  2. CLONAZEPAM [Interacting]
     Active Substance: CLONAZEPAM
  3. VENLAFAXINE [Interacting]
     Active Substance: VENLAFAXINE HYDROCHLORIDE
  4. QUETIAPINE [Interacting]
     Active Substance: QUETIAPINE

REACTIONS (5)
  - Mental status changes [Recovering/Resolving]
  - Metabolic acidosis [Recovering/Resolving]
  - Acute kidney injury [Recovering/Resolving]
  - Serotonin syndrome [Recovering/Resolving]
  - Drug interaction [Recovering/Resolving]
